FAERS Safety Report 9669921 (Version 3)
Quarter: 2014Q1

REPORT INFORMATION
  Report Type: Report from Study
  Country: US (occurrence: US)
  Receive Date: 20131105
  Receipt Date: 20140115
  Transmission Date: 20141002
  Serious: Yes (Other)
  Sender: FDA-Public Use
  Company Number: US-TEVA-437590USA

PATIENT
  Age: 67 Year
  Sex: Male

DRUGS (2)
  1. COPAXONE [Suspect]
     Indication: MULTIPLE SCLEROSIS
     Dates: start: 20111118
  2. METOPROLOL [Suspect]
     Indication: HYPERTENSION
     Dosage: 100 MILLIGRAM DAILY;

REACTIONS (4)
  - Vitreous floaters [Unknown]
  - Heart rate decreased [Unknown]
  - Electrocardiogram abnormal [Unknown]
  - Hypotension [Unknown]
